FAERS Safety Report 19234000 (Version 8)
Quarter: 2022Q3

REPORT INFORMATION
  Report Type: Spontaneous
  Country: US (occurrence: US)
  Receive Date: 20210508
  Receipt Date: 20220808
  Transmission Date: 20221026
  Serious: Yes (Hospitalization)
  Sender: FDA-Public Use
  Company Number: US-SA-SAC20210506001523

PATIENT
  Age: 23 Year
  Sex: Male

DRUGS (2)
  1. DUPIXENT [Suspect]
     Active Substance: DUPILUMAB
     Indication: Dermatitis atopic
     Dosage: 600 MG, 1X
     Route: 058
     Dates: start: 20200915, end: 20200915
  2. DUPIXENT [Suspect]
     Active Substance: DUPILUMAB
     Dosage: 300 MG, QOW
     Route: 058
     Dates: start: 2020

REACTIONS (7)
  - Somnambulism [Unknown]
  - Vision blurred [Unknown]
  - Condition aggravated [Unknown]
  - Limb injury [Unknown]
  - Illness [Not Recovered/Not Resolved]
  - Mental disorder [Unknown]
  - Product dose omission issue [Unknown]
